FAERS Safety Report 14133761 (Version 1)
Quarter: 2017Q4

REPORT INFORMATION
  Report Type: Report from Study
  Country: TN (occurrence: TN)
  Receive Date: 20171026
  Receipt Date: 20171026
  Transmission Date: 20180321
  Serious: Yes (Death, Hospitalization)
  Sender: FDA-Public Use
  Company Number: TN-SA-2017SA207530

PATIENT
  Age: 63 Year
  Sex: Male

DRUGS (6)
  1. PLAVIX [Suspect]
     Active Substance: CLOPIDOGREL BISULFATE
     Indication: MYOCARDIAL INFARCTION
     Route: 048
     Dates: start: 20170315, end: 20170904
  2. LOPRIL [Concomitant]
     Active Substance: LISINOPRIL
     Route: 048
  3. ATOR [Concomitant]
     Active Substance: ATORVASTATIN CALCIUM
     Route: 048
  4. PLAVIX [Suspect]
     Active Substance: CLOPIDOGREL BISULFATE
     Indication: STENT PLACEMENT
     Route: 048
     Dates: start: 20170315, end: 20170904
  5. ASPIRIN. [Concomitant]
     Active Substance: ASPIRIN
     Route: 048
  6. NEBILET [Concomitant]
     Active Substance: NEBIVOLOL
     Route: 048

REACTIONS (4)
  - Back pain [Unknown]
  - Hyperglycaemia [Unknown]
  - Pancreatic carcinoma [Fatal]
  - Pain in extremity [Unknown]

NARRATIVE: CASE EVENT DATE: 20170807
